FAERS Safety Report 6276105-X (Version None)
Quarter: 2009Q3

REPORT INFORMATION
  Report Type: 
  Country: None (occurrence: None)
  Receive Date: 20090717
  Receipt Date: 20090717
  Transmission Date: 20100115
  Serious: No
  Sender: FDA-Public Use
  Company Number: None

PATIENT
  Sex: Female

DRUGS (1)
  1. TOPAMAX [Suspect]
     Indication: EPILEPSY
     Dosage: PO BID 9 CAPS

REACTIONS (3)
  - CONVULSION [None]
  - DEVELOPMENTAL DELAY [None]
  - PRODUCT SUBSTITUTION ISSUE [None]
